FAERS Safety Report 5021737-X (Version None)
Quarter: 2006Q2

REPORT INFORMATION
  Report Type: 
  Country: None (occurrence: None)
  Receive Date: 20060605
  Receipt Date: 20060523
  Transmission Date: 20061013
  Serious: Yes (Other)
  Sender: FDA-Public Use
  Company Number: 225176

PATIENT
  Age: 81 Year
  Sex: Female
  Weight: 59 kg

DRUGS (18)
  1. AVASTIN [Suspect]
     Indication: COLON CANCER
     Dosage: 5 MG/KG, Q2W, INTRAVENOUS
     Route: 042
     Dates: start: 20060216
  2. FLUOROURACIL [Suspect]
     Indication: COLON CANCER
     Dosage: 500 MG/M2, 1/WEEK, INTRAVENOUS
     Route: 042
     Dates: start: 20060202
  3. LEUCOVORIN CALCIUM [Suspect]
     Indication: COLON CANCER
     Dosage: 500 MG/M2, 1/WEEK, INTRAVENOUS
     Route: 042
     Dates: start: 20060202
  4. DECADRON SRC [Concomitant]
  5. ANZEMET [Concomitant]
  6. B12 COMPLEX (CYANOCOBALAMIN, VITAMIN B COMPLEX) [Concomitant]
  7. LANOXIN [Concomitant]
  8. ATENOLOL [Concomitant]
  9. PACERONE [Concomitant]
  10. PEPCID [Concomitant]
  11. ASPIRIN [Concomitant]
  12. KLONOPIN [Concomitant]
  13. DIAZEPAM [Concomitant]
  14. AMPICILLIN [Concomitant]
  15. CENTRUM SILVER (MINERALS NOS, MULTIVITAMINS NOS) [Concomitant]
  16. IRON (IRON NOS) [Concomitant]
  17. LORTAB [Concomitant]
  18. PROTONIX [Concomitant]

REACTIONS (6)
  - AORTIC STENOSIS [None]
  - AORTIC VALVE INCOMPETENCE [None]
  - INTRACARDIAC THROMBUS [None]
  - MITRAL VALVE INCOMPETENCE [None]
  - PACEMAKER COMPLICATION [None]
  - PLEURAL EFFUSION [None]
